FAERS Safety Report 6784434-6 (Version None)
Quarter: 2010Q2

REPORT INFORMATION
  Report Type: 
  Country: None (occurrence: None)
  Receive Date: 20100622
  Receipt Date: 20100609
  Transmission Date: 20101027
  Serious: Yes (Other)
  Sender: FDA-Public Use
  Company Number: TR-BAYER-201028386GPV

PATIENT

DRUGS (3)
  1. FLUDARABINE [Suspect]
     Indication: LYMPHOMA
     Dosage: ON DAYS -4 TO -2
  2. CYCLOPHOSPHAMIDE [Suspect]
     Indication: LYMPHOMA
     Dosage: AS USED: 350 MG/M2
  3. BUSULFEX [Suspect]
     Indication: LYMPHOMA
     Dosage: AS USED: 4 MG/KG
     Route: 048

REACTIONS (1)
  - VENOOCCLUSIVE LIVER DISEASE [None]
